FAERS Safety Report 4355017-2 (Version None)
Quarter: 2004Q2

REPORT INFORMATION
  Report Type: 
  Country: None (occurrence: None)
  Receive Date: 20040504
  Receipt Date: 20040422
  Transmission Date: 20050107
  Serious: Yes (Hospitalization)
  Sender: FDA-Public Use
  Company Number: 04P-056-0258406-00

PATIENT
  Age: 59 Year
  Sex: Male

DRUGS (5)
  1. ISOPTIN [Suspect]
     Dosage: 240 MG, PER ORAL
     Route: 048
     Dates: end: 20040101
  2. ASPIRIN [Suspect]
     Dosage: PER ORAL
     Route: 048
     Dates: end: 20040101
  3. SIMVASTATIN [Suspect]
     Dosage: PER ORAL
     Route: 048
     Dates: end: 20040101
  4. FUROSEMIDE [Concomitant]
  5. NICOTINAMIDE [Concomitant]

REACTIONS (7)
  - ARTHRALGIA [None]
  - ERECTILE DYSFUNCTION [None]
  - FALL [None]
  - MOTOR DYSFUNCTION [None]
  - MOVEMENT DISORDER [None]
  - NECK PAIN [None]
  - RHABDOMYOLYSIS [None]
